FAERS Safety Report 10654798 (Version 1)
Quarter: 2014Q4

REPORT INFORMATION
  Report Type: Spontaneous
  Country: CA (occurrence: None)
  Receive Date: 20141215
  Receipt Date: 20141215
  Transmission Date: 20150529
  Serious: Yes (Disabling)
  Sender: FDA-Public Use
  Company Number: None

PATIENT
  Age: 51 Year
  Sex: Female

DRUGS (1)
  1. ZOPICLONE [Suspect]
     Active Substance: ZOPICLONE
     Indication: SLEEP DISORDER
     Dosage: 2 TABLETS
     Dates: start: 20141210, end: 20141213

REACTIONS (6)
  - Psychomotor hyperactivity [None]
  - Paraesthesia [None]
  - Feeling abnormal [None]
  - Burning sensation [None]
  - Initial insomnia [None]
  - Tension headache [None]

NARRATIVE: CASE EVENT DATE: 20141213
